FAERS Safety Report 6389470-X (Version None)
Quarter: 2009Q4

REPORT INFORMATION
  Report Type: 
  Country: None (occurrence: None)
  Receive Date: 20091003
  Receipt Date: 20090928
  Transmission Date: 20100525
  Serious: Yes (Other)
  Sender: FDA-Public Use
  Company Number: 1000009135

PATIENT
  Age: 34 Year
  Sex: Male

DRUGS (5)
  1. LEXAPRO [Suspect]
     Indication: DEPRESSION
     Dosage: 10 MG (10 MG,ONCE), ORAL
     Route: 048
     Dates: start: 20090925, end: 20090925
  2. FLONASE [Concomitant]
  3. ALLEGRA [Concomitant]
  4. SINGULAIR [Concomitant]
  5. ALPRAZOLAN [Concomitant]

REACTIONS (8)
  - AURA [None]
  - BACK PAIN [None]
  - CONVULSION [None]
  - DISORIENTATION [None]
  - HEADACHE [None]
  - LOSS OF CONSCIOUSNESS [None]
  - POSTICTAL HEADACHE [None]
  - POSTICTAL STATE [None]
